FAERS Safety Report 5405367-3 (Version None)
Quarter: 2007Q3

REPORT INFORMATION
  Report Type: 
  Country: None (occurrence: None)
  Receive Date: 20070803
  Receipt Date: 20070723
  Transmission Date: 20080115
  Serious: Yes (Other)
  Sender: FDA-Public Use
  Company Number: MY-PFIZER INC-2007061985

PATIENT

DRUGS (1)
  1. SULPERAZON [Suspect]

REACTIONS (1)
  - CONVULSION [None]
